FAERS Safety Report 6431484-5 (Version None)
Quarter: 2009Q4

REPORT INFORMATION
  Report Type: 
  Country: None (occurrence: None)
  Receive Date: 20091106
  Receipt Date: 20091028
  Transmission Date: 20100525
  Serious: No
  Sender: FDA-Public Use
  Company Number: US-B.I. PHARMACEUTICALS,INC./RIDGEFIELD-2009-BP-12585BP

PATIENT
  Sex: Male

DRUGS (1)
  1. COMBIVENT [Suspect]
     Indication: CHRONIC OBSTRUCTIVE PULMONARY DISEASE
     Dosage: 8 PUF
     Route: 055
     Dates: start: 20091007, end: 20091027

REACTIONS (5)
  - LIP PAIN [None]
  - MYALGIA [None]
  - NASAL DISCOMFORT [None]
  - ORAL PAIN [None]
  - PAINFUL RESPIRATION [None]
